FAERS Safety Report 4423941-8 (Version None)
Quarter: 2004Q3

REPORT INFORMATION
  Report Type: 
  Country: None (occurrence: None)
  Receive Date: 20040805
  Receipt Date: 20040721
  Transmission Date: 20050211
  Serious: Yes (Other)
  Sender: FDA-Public Use
  Company Number: 2004225103JP

PATIENT
  Age: 40 Year
  Sex: Male

DRUGS (5)
  1. SOLU-MEDROL [Suspect]
     Indication: PROPHYLAXIS AGAINST TRANSPLANT REJECTION
     Dosage: SEE IMAGE
     Route: 042
  2. CELLEPT (MYCOPHENOLATE MOFETIL) [Concomitant]
  3. BASILIXIMAB (BASILIXMAB) [Concomitant]
  4. NEORAL [Concomitant]
  5. PREDONINE [Concomitant]

REACTIONS (7)
  - BLOOD CREATININE INCREASED [None]
  - CYTOMEGALOVIRUS INFECTION [None]
  - DIALYSIS [None]
  - KERATITIS HERPETIC [None]
  - KIDNEY TRANSPLANT REJECTION [None]
  - PNEUMONIA BACTERIAL [None]
  - URINE OUTPUT DECREASED [None]
